FAERS Safety Report 16720157 (Version 2)
Quarter: 2019Q3

REPORT INFORMATION
  Report Type: Spontaneous
  Country: US (occurrence: US)
  Receive Date: 20190820
  Receipt Date: 20190910
  Transmission Date: 20191005
  Serious: No
  Sender: FDA-Public Use
  Company Number: US-MYLANLABS-2019M1074616

PATIENT
  Sex: Female

DRUGS (2)
  1. VAGIFEM [Concomitant]
     Active Substance: ESTRADIOL
  2. ESTRADIOL TRANSDERMAL SYSTEM [Suspect]
     Active Substance: ESTRADIOL
     Indication: PRODUCT USED FOR UNKNOWN INDICATION
     Dosage: UNK

REACTIONS (6)
  - Therapeutic product effect decreased [Unknown]
  - Breast tenderness [Not Recovered/Not Resolved]
  - Hot flush [Not Recovered/Not Resolved]
  - Product adhesion issue [Unknown]
  - Product residue present [Unknown]
  - Product odour abnormal [Unknown]
